FAERS Safety Report 7811001 (Version 2)
Quarter: 2012Q4

REPORT INFORMATION
  Report Type: 
  Country: US (occurrence: US)
  Receive Date: 20110214
  Receipt Date: 20121212
  Transmission Date: 20130627
  Serious: Yes (Other)
  Sender: FDA-Public Use
  Company Number: US-ROCHE-751881

PATIENT
  Age: 16 None
  Sex: Male
  Weight: 104.3 kg

DRUGS (2)
  1. ACCUTANE [Suspect]
     Indication: ACNE
     Route: 048
  2. ACCUTANE [Suspect]
     Route: 048
     Dates: start: 20010316, end: 200109

REACTIONS (10)
  - Colitis ulcerative [Recovering/Resolving]
  - Inflammatory bowel disease [Unknown]
  - Intestinal haemorrhage [Unknown]
  - Gastrooesophageal reflux disease [Unknown]
  - Dyspepsia [Unknown]
  - Diarrhoea [Unknown]
  - Dry skin [Unknown]
  - Epistaxis [Unknown]
  - Lip dry [Unknown]
  - Dry eye [Unknown]
